FAERS Safety Report 7582733-1 (Version None)
Quarter: 2011Q2

REPORT INFORMATION
  Report Type: 
  Country: None (occurrence: None)
  Receive Date: 20110630
  Receipt Date: 20110617
  Transmission Date: 20111010
  Serious: Yes (Hospitalization)
  Sender: FDA-Public Use
  Company Number: US-JNJFOC-20110608692

PATIENT
  Age: 27 Year
  Sex: Male
  Weight: 50.8 kg

DRUGS (3)
  1. REMICADE [Suspect]
     Indication: CROHN'S DISEASE
     Route: 042
     Dates: start: 20081101, end: 20110201
  2. AZATHIOPRINE [Suspect]
     Indication: CROHN'S DISEASE
  3. STEROIDS NOS [Concomitant]

REACTIONS (7)
  - MYOCARDIAL INFARCTION [None]
  - SUBCUTANEOUS EMPHYSEMA [None]
  - PNEUMONIA [None]
  - PERICARDITIS [None]
  - INTESTINAL PROLAPSE [None]
  - LOSS OF CONSCIOUSNESS [None]
  - COLLAPSE OF LUNG [None]
